FAERS Safety Report 11531769 (Version 1)
Quarter: 2015Q3

REPORT INFORMATION
  Report Type: Spontaneous
  Country: FR (occurrence: FR)
  Receive Date: 20150921
  Receipt Date: 20150921
  Transmission Date: 20151125
  Serious: Yes (Hospitalization)
  Sender: FDA-Public Use
  Company Number: FR-ACORDA-ACO_116914_2015

PATIENT
  Age: 50 Year
  Sex: Male

DRUGS (1)
  1. QUTENZA [Suspect]
     Active Substance: CAPSAICIN
     Indication: NEURALGIA
     Dosage: UNK UNK, UNKNOWN FREQ.
     Dates: start: 201507

REACTIONS (2)
  - Application site pain [Recovered/Resolved]
  - Psychological factor affecting medical condition [Recovered/Resolved]

NARRATIVE: CASE EVENT DATE: 201507
